FAERS Safety Report 6055355-1 (Version None)
Quarter: 2009Q1

REPORT INFORMATION
  Report Type: 
  Country: None (occurrence: None)
  Receive Date: 20090122
  Receipt Date: 20090113
  Transmission Date: 20090719
  Serious: Yes (Hospitalization)
  Sender: FDA-Public Use
  Company Number: 233954J08USA

PATIENT
  Age: 44 Year
  Sex: Female
  Weight: 40 kg

DRUGS (4)
  1. REBIF [Suspect]
     Indication: MULTIPLE SCLEROSIS
     Dosage: 44 MCG, 3 IN 1 WEEKS, SUBCUTANEOUS
     Route: 058
     Dates: start: 20080304
  2. VALTREX [Concomitant]
  3. KLONOPIN [Concomitant]
  4. UNSPECIFIED MEDICATION (ALL OTHER THERAPEUTIC PRODUCTS) [Concomitant]

REACTIONS (6)
  - ABNORMAL BEHAVIOUR [None]
  - DIARRHOEA [None]
  - HALLUCINATION [None]
  - MIDDLE INSOMNIA [None]
  - VOMITING [None]
  - WEIGHT DECREASED [None]
